FAERS Safety Report 25660785 (Version 1)
Quarter: 2025Q3

REPORT INFORMATION
  Report Type: Spontaneous
  Country: EU (occurrence: EU)
  Receive Date: 20250808
  Receipt Date: 20250808
  Transmission Date: 20251020
  Serious: Yes (Life-Threatening, Other)
  Sender: RANBAXY
  Company Number: EU-AFSSAPS-AN2024000326

PATIENT
  Age: 61 Year
  Sex: Male

DRUGS (6)
  1. LANSOPRAZOLE [Suspect]
     Active Substance: LANSOPRAZOLE
     Indication: Prophylaxis against gastrointestinal ulcer
     Dosage: 15 MILLIGRAM, DAILY
     Route: 048
     Dates: end: 20240217
  2. PEMBROLIZUMAB [Suspect]
     Active Substance: PEMBROLIZUMAB
     Indication: Oesophageal carcinoma
     Dosage: 200 MILLIGRAM, 1DOSE/21DAYS
     Route: 040
     Dates: start: 20231106, end: 20240129
  3. FLUOROURACIL [Suspect]
     Active Substance: FLUOROURACIL
     Indication: Oesophageal carcinoma
     Dosage: 8 GRAM, 1DOSE/21DAYS
     Route: 040
     Dates: start: 20231106, end: 20240203
  4. CISPLATIN [Suspect]
     Active Substance: CISPLATIN
     Indication: Oesophageal carcinoma
     Dosage: 160 MILLIGRAM, 1DOSE/21DAYS
     Route: 040
     Dates: start: 20231106, end: 20240129
  5. INNOHEP [Suspect]
     Active Substance: TINZAPARIN SODIUM
     Indication: Thrombosis prophylaxis
     Dosage: 1 DOSAGE FORM, DAILY
     Route: 058
     Dates: start: 2020, end: 20240129
  6. PREDNISOLONE [Suspect]
     Active Substance: PREDNISOLONE
     Indication: Joint swelling
     Dosage: 1 DOSAGE FORM, DAILY
     Route: 048
     Dates: end: 20240217

REACTIONS (1)
  - Interstitial lung disease [Not Recovered/Not Resolved]

NARRATIVE: CASE EVENT DATE: 20240217
